FAERS Safety Report 6190576-9 (Version None)
Quarter: 2009Q2

REPORT INFORMATION
  Report Type: 
  Country: None (occurrence: None)
  Receive Date: 20090514
  Receipt Date: 20090115
  Transmission Date: 20091009
  Serious: Yes (Hospitalization)
  Sender: FDA-Public Use
  Company Number: US-BRISTOL-MYERS SQUIBB COMPANY-14473771

PATIENT
  Age: 47 Year
  Sex: Female
  Weight: 51 kg

DRUGS (7)
  1. IXEMPRA KIT [Suspect]
     Indication: BREAST CANCER METASTATIC
     Dates: start: 20081204
  2. HERCEPTIN [Suspect]
  3. COUMADIN [Concomitant]
  4. MEGACE [Concomitant]
  5. OXYCODONE [Concomitant]
  6. ZOFRAN [Concomitant]
  7. K-DUR [Concomitant]

REACTIONS (1)
  - UPPER GASTROINTESTINAL HAEMORRHAGE [None]
